FAERS Safety Report 7496499-7 (Version None)
Quarter: 2011Q2

REPORT INFORMATION
  Report Type: 
  Country: None (occurrence: None)
  Receive Date: 20110523
  Receipt Date: 20110512
  Transmission Date: 20111010
  Serious: Yes (Death)
  Sender: FDA-Public Use
  Company Number: AU-ROCHE-777471

PATIENT
  Age: 29 Year
  Sex: Male

DRUGS (7)
  1. OXYCODONE HCL [Suspect]
     Route: 065
  2. CHLORPROMAZINE HCL [Suspect]
     Route: 065
  3. OXYCONTIN [Suspect]
     Dosage: DOSE UNSPECIFIED
     Route: 048
  4. XANAX [Suspect]
     Route: 065
  5. NUROFEN PLUS [Suspect]
     Route: 065
  6. ACETAMINOPHEN AND CODEINE PHOSPHATE [Suspect]
     Route: 065
  7. VALIUM [Suspect]
     Route: 065

REACTIONS (3)
  - OVERDOSE [None]
  - DEATH [None]
  - DRUG DEPENDENCE [None]
